FAERS Safety Report 8607118 (Version 3)
Quarter: 2013Q4

REPORT INFORMATION
  Report Type: Spontaneous
  Country: US (occurrence: US)
  Receive Date: 20120611
  Receipt Date: 20131015
  Transmission Date: 20140711
  Serious: Yes (Other)
  Sender: FDA-Public Use
  Company Number: US-ASTRAZENECA-2012SE36234

PATIENT
  Age: 62 Year
  Sex: Female
  Weight: 68 kg

DRUGS (7)
  1. NEXIUM [Suspect]
     Indication: GASTROOESOPHAGEAL REFLUX DISEASE
     Dosage: TAKE 1 CAPSULE DAILY
     Route: 048
  2. TUMS [Concomitant]
  3. ROLAIDS [Concomitant]
  4. MYLANTA [Concomitant]
  5. MULTIVITAMINS [Concomitant]
  6. ASPIRIN [Concomitant]
  7. ARIMIDEX [Concomitant]

REACTIONS (4)
  - Breast cancer [Unknown]
  - Osteoporosis [Unknown]
  - Multiple fractures [Unknown]
  - Rib fracture [Unknown]
